FAERS Safety Report 10678337 (Version 1)
Quarter: 2014Q4

REPORT INFORMATION
  Report Type: Spontaneous
  Country: CH (occurrence: CH)
  Receive Date: 20141229
  Receipt Date: 20141229
  Transmission Date: 20150529
  Serious: Yes (Other)
  Sender: FDA-Public Use
  Company Number: CH-JNJFOC-20141215313

PATIENT
  Age: 40 Year
  Sex: Female

DRUGS (7)
  1. ARCOXIA [Suspect]
     Active Substance: ETORICOXIB
     Indication: SPONDYLITIS
     Route: 048
     Dates: start: 2013
  2. HUMIRA [Suspect]
     Active Substance: ADALIMUMAB
     Indication: SPONDYLITIS
     Dosage: 3-4 APPLICATIONS
     Route: 065
     Dates: start: 201305, end: 201309
  3. SIMPONI [Suspect]
     Active Substance: GOLIMUMAB
     Indication: SPONDYLITIS
     Route: 058
     Dates: start: 201310, end: 201310
  4. ZALDIAR [Suspect]
     Active Substance: ACETAMINOPHEN\TRAMADOL HYDROCHLORIDE
     Indication: SPONDYLITIS
     Dosage: 325/37.5 MG AS NECESSARY (2-3 TOTAL)
     Route: 048
     Dates: start: 2013
  5. DAFALGAN [Suspect]
     Active Substance: ACETAMINOPHEN
     Indication: SPONDYLITIS
     Route: 048
     Dates: start: 2013
  6. DEROXAT [Suspect]
     Active Substance: PAROXETINE HYDROCHLORIDE
     Indication: SPONDYLITIS
     Route: 048
     Dates: start: 2013
  7. VOLTAREN [Suspect]
     Active Substance: DICLOFENAC SODIUM
     Indication: SPONDYLITIS
     Route: 065
     Dates: start: 2013

REACTIONS (2)
  - Exposure during pregnancy [Recovered/Resolved]
  - Gestational diabetes [Unknown]

NARRATIVE: CASE EVENT DATE: 20131015
